FAERS Safety Report 19489564 (Version 1)
Quarter: 2021Q3

REPORT INFORMATION
  Report Type: Spontaneous
  Country: US (occurrence: US)
  Receive Date: 20210703
  Receipt Date: 20210703
  Transmission Date: 20211014
  Serious: No
  Sender: FDA-Public Use
  Company Number: US-SA-2021SA216897

PATIENT
  Age: 69 Year
  Sex: Female

DRUGS (13)
  1. BROVANA [Concomitant]
     Active Substance: ARFORMOTEROL TARTRATE
  2. CLARINEX [Concomitant]
     Active Substance: DESLORATADINE
  3. BUDESONIDE. [Concomitant]
     Active Substance: BUDESONIDE
  4. ESTRING [Concomitant]
     Active Substance: ESTRADIOL
  5. ZETIA [Concomitant]
     Active Substance: EZETIMIBE
  6. PREDNISONE. [Concomitant]
     Active Substance: PREDNISONE
  7. COZAAR [Concomitant]
     Active Substance: LOSARTAN POTASSIUM
  8. LEXAPRO [Concomitant]
     Active Substance: ESCITALOPRAM OXALATE
  9. DILTIAZEM. [Concomitant]
     Active Substance: DILTIAZEM
  10. LIVALO [Concomitant]
     Active Substance: PITAVASTATIN CALCIUM
  11. PEPCID [Concomitant]
     Active Substance: FAMOTIDINE
  12. DUPIXENT [Suspect]
     Active Substance: DUPILUMAB
     Indication: ASTHMA
     Route: 058
     Dates: start: 20191114
  13. BUDESONIDE AND FORMOTEROL [Concomitant]
     Active Substance: BUDESONIDE\FORMOTEROL

REACTIONS (3)
  - Asthma [Not Recovered/Not Resolved]
  - Product use issue [Not Recovered/Not Resolved]
  - Impaired quality of life [Not Recovered/Not Resolved]

NARRATIVE: CASE EVENT DATE: 20191114
